FAERS Safety Report 4985924-9 (Version None)
Quarter: 2006Q2

REPORT INFORMATION
  Report Type: 
  Country: None (occurrence: None)
  Receive Date: 20060421
  Receipt Date: 20060411
  Transmission Date: 20061013
  Serious: Yes (Life-Threatening, Hospitalization, Other)
  Sender: FDA-Public Use
  Company Number: 13625

PATIENT
  Age: 56 Year
  Sex: Female
  Weight: 50 kg

DRUGS (8)
  1. METHOTREXATE [Suspect]
     Indication: BONE SARCOMA
     Dosage: 15 G QD IV
     Route: 042
     Dates: start: 20060130, end: 20060130
  2. DIAMOX [Concomitant]
  3. TAGAMET [Concomitant]
  4. NEOPHAGEN-1 [Concomitant]
  5. ZOFRAN [Concomitant]
  6. MEYLON [Concomitant]
  7. SOLDEM 1 [Concomitant]
  8. SOLDEM 3A [Concomitant]

REACTIONS (3)
  - DIARRHOEA [None]
  - DISSEMINATED INTRAVASCULAR COAGULATION [None]
  - PYREXIA [None]
